FAERS Safety Report 19105011 (Version 1)
Quarter: 2021Q2

REPORT INFORMATION
  Report Type: Spontaneous
  Country: US (occurrence: US)
  Receive Date: 20210407
  Receipt Date: 20210407
  Transmission Date: 20210717
  Serious: Yes (Death, Other)
  Sender: FDA-Public Use
  Company Number: US-AMGEN-USASP2021049653

PATIENT
  Age: 43 Year
  Sex: Female

DRUGS (6)
  1. TACROLIMUS. [Concomitant]
     Active Substance: TACROLIMUS
     Indication: IMMUNOSUPPRESSION
     Dosage: 0.5 MILLIGRAM, BID
  2. DEXAMETHASONE. [Concomitant]
     Active Substance: DEXAMETHASONE
     Indication: THROMBOTIC MICROANGIOPATHY
  3. ROMIPLOSTIM [Suspect]
     Active Substance: ROMIPLOSTIM
     Indication: THROMBOTIC MICROANGIOPATHY
     Dosage: 10 MICROGRAM/KILOGRAM, QWK
     Route: 058
     Dates: start: 201911
  4. MYCOPHENOLATE MOFETIL. [Concomitant]
     Active Substance: MYCOPHENOLATE MOFETIL
     Indication: THROMBOTIC MICROANGIOPATHY
  5. ECULIZUMAB [Concomitant]
     Active Substance: ECULIZUMAB
     Indication: THROMBOTIC MICROANGIOPATHY
     Dosage: UNK
     Dates: start: 20191203
  6. IMMUNOGLOBULIN I.V [Concomitant]
     Active Substance: HUMAN IMMUNOGLOBULIN G
     Indication: THROMBOTIC MICROANGIOPATHY

REACTIONS (5)
  - Platelet count increased [Unknown]
  - Liver transplant rejection [Fatal]
  - Therapeutic product effect incomplete [Unknown]
  - Off label use [Unknown]
  - Sepsis [Fatal]

NARRATIVE: CASE EVENT DATE: 201911
